FAERS Safety Report 4399885-7 (Version None)
Quarter: 2004Q3

REPORT INFORMATION
  Report Type: 
  Country: None (occurrence: None)
  Receive Date: 20040712
  Receipt Date: 20030721
  Transmission Date: 20050211
  Serious: Yes (Disabling)
  Sender: FDA-Public Use
  Company Number: 3534

PATIENT
  Age: 76 Year
  Sex: Male
  Weight: 92.0802 kg

DRUGS (5)
  1. PACERONE [Suspect]
     Indication: HEART RATE INCREASED
     Dosage: 200 MG QD PO
     Route: 048
     Dates: start: 20030407, end: 20030707
  2. ATENOLOL [Concomitant]
  3. COUMADIN [Concomitant]
  4. SOTALOL HCL [Concomitant]
  5. ASPIRIN [Concomitant]

REACTIONS (1)
  - OPTIC NEUROPATHY [None]
